FAERS Safety Report 12453269 (Version 4)
Quarter: 2016Q2

REPORT INFORMATION
  Report Type: Spontaneous
  Country: AR (occurrence: AR)
  Receive Date: 20160609
  Receipt Date: 20160629
  Transmission Date: 20160815
  Serious: Yes (Death, Hospitalization, Other)
  Sender: FDA-Public Use
  Company Number: AR-ABBVIE-16P-007-1639445-00

PATIENT
  Age: 48 Year
  Sex: Male

DRUGS (1)
  1. VIEKIRA PAK [Suspect]
     Active Substance: DASABUVIR\OMBITASVIR\PARITAPREVIR\RITONAVIR
     Indication: HEPATITIS C
     Route: 048
     Dates: start: 201603

REACTIONS (13)
  - Respiratory disorder [Unknown]
  - Abdominal pain [Unknown]
  - Dyspnoea [Unknown]
  - Hyperkalaemia [Unknown]
  - Encephalopathy [Unknown]
  - Cardiogenic shock [Fatal]
  - Jaundice [Unknown]
  - Pain [Unknown]
  - Pyrexia [Unknown]
  - Pneumonia [Unknown]
  - Hepatic failure [Unknown]
  - Hepatorenal failure [Unknown]
  - Ventricular fibrillation [Unknown]

NARRATIVE: CASE EVENT DATE: 20160527
